FAERS Safety Report 23306567 (Version 1)
Quarter: 2023Q4

REPORT INFORMATION
  Report Type: Spontaneous
  Country: ZA (occurrence: None)
  Receive Date: 20231218
  Receipt Date: 20231218
  Transmission Date: 20240110
  Serious: Yes (Death)
  Sender: FDA-Public Use
  Company Number: 2023A284538

PATIENT
  Age: 81 Year
  Sex: Female

DRUGS (4)
  1. DAPAGLIFLOZIN [Suspect]
     Active Substance: DAPAGLIFLOZIN
     Indication: Diabetes mellitus
     Dosage: 10.0MG UNKNOWN
     Route: 048
     Dates: end: 202310
  2. METFORMIN HYDROCHLORIDE [Concomitant]
     Active Substance: METFORMIN HYDROCHLORIDE
     Indication: Diabetes mellitus
     Dosage: 500.0MG UNKNOWN
     Route: 048
     Dates: end: 202310
  3. LIPOGEN [Concomitant]
     Indication: Blood cholesterol
     Dosage: 10.0MG UNKNOWN
     Route: 048
     Dates: end: 202310
  4. ESOMEPRAZOLE [Concomitant]
     Active Substance: ESOMEPRAZOLE
     Indication: Ulcer
     Dosage: 40.0MG UNKNOWN
     Route: 048

REACTIONS (1)
  - Neoplasm malignant [Fatal]
